FAERS Safety Report 9134022 (Version 2)
Quarter: 2013Q2

REPORT INFORMATION
  Report Type: Spontaneous
  Country: US (occurrence: US)
  Receive Date: 20130304
  Receipt Date: 20130527
  Transmission Date: 20140414
  Serious: No
  Sender: FDA-Public Use
  Company Number: US-009507513-1303USA000551

PATIENT
  Age: 25 Year
  Sex: Female
  Weight: 56.24 kg

DRUGS (1)
  1. IMPLANON [Suspect]
     Indication: CONTRACEPTION
     Dosage: UNK
     Route: 059
     Dates: start: 20120927, end: 20130326

REACTIONS (3)
  - Medical device discomfort [Unknown]
  - Device dislocation [Unknown]
  - Device kink [Recovered/Resolved]
